FAERS Safety Report 5091889-4 (Version None)
Quarter: 2006Q3

REPORT INFORMATION
  Report Type: 
  Country: None (occurrence: None)
  Receive Date: 20060825
  Receipt Date: 20060816
  Transmission Date: 20061208
  Serious: Yes (Other)
  Sender: FDA-Public Use
  Company Number: 2006091416

PATIENT
  Age: 47 Year
  Sex: Male
  Weight: 58 kg

DRUGS (11)
  1. LYRICA [Suspect]
     Indication: NEURALGIA
     Dosage: 150 MG, ORAL
     Route: 048
     Dates: start: 20060401, end: 20060101
  2. LYRICA [Suspect]
     Indication: POLYNEUROPATHY
     Dosage: 150 MG, ORAL
     Route: 048
     Dates: start: 20060401, end: 20060101
  3. NEURONTIN [Suspect]
     Indication: NEURALGIA
     Dosage: ORAL
  4. NEURONTIN [Suspect]
     Indication: POLYNEUROPATHY
     Dosage: ORAL
  5. OPIOIDS (OPIOIDS) [Suspect]
     Indication: DRUG USE FOR UNKNOWN INDICATION
  6. ALCOHOL (ETHANOL) [Suspect]
     Indication: DRUG USE FOR UNKNOWN INDICATION
  7. REYATAZ [Concomitant]
  8. TRUVADA [Concomitant]
  9. MORPHINE [Concomitant]
  10. OXYCODONE HCL [Concomitant]
  11. ALL OTHER THERAPEUTIC PRODUCTS [Concomitant]

REACTIONS (11)
  - AGGRESSION [None]
  - ALCOHOL INTERACTION [None]
  - BALANCE DISORDER [None]
  - DRUG INEFFECTIVE [None]
  - DRUG INTERACTION [None]
  - FEELING ABNORMAL [None]
  - MEMORY IMPAIRMENT [None]
  - MUSCLE SPASMS [None]
  - PERSONALITY CHANGE [None]
  - SPEECH DISORDER [None]
  - TREMOR [None]
